FAERS Safety Report 9104849 (Version 1)
Quarter: 2013Q1

REPORT INFORMATION
  Report Type: Report from Study
  Country: DE (occurrence: DE)
  Receive Date: 20130220
  Receipt Date: 20130220
  Transmission Date: 20140127
  Serious: Yes (Hospitalization)
  Sender: FDA-Public Use
  Company Number: DE-ABBOTT-13P-062-1050540-00

PATIENT
  Age: 68 Year
  Sex: Female
  Weight: 70 kg

DRUGS (4)
  1. HUMIRA [Suspect]
     Indication: PRODUCT USED FOR UNKNOWN INDICATION
     Route: 058
     Dates: start: 20120927, end: 20121023
  2. LEFLUNOMIDE [Concomitant]
     Indication: PRODUCT USED FOR UNKNOWN INDICATION
     Dosage: 20 MG DAILY
     Dates: start: 200009
  3. PREDNISOLON [Concomitant]
     Indication: PRODUCT USED FOR UNKNOWN INDICATION
     Route: 048
     Dates: start: 200001
  4. VOTUM [Concomitant]
     Indication: HYPERTENSION
     Dosage: 10 MG DAILY
     Dates: start: 200906

REACTIONS (5)
  - Tendon rupture [Not Recovered/Not Resolved]
  - Femoral neck fracture [Recovered/Resolved]
  - Hyperhidrosis [Unknown]
  - Oedema peripheral [Unknown]
  - Dyspnoea [Unknown]
